FAERS Safety Report 9006048 (Version 2)
Quarter: 2013Q1

REPORT INFORMATION
  Report Type: Report from Study
  Country: NZ (occurrence: NZ)
  Receive Date: 20130109
  Receipt Date: 20130326
  Transmission Date: 20140127
  Serious: Yes (Hospitalization, Other)
  Sender: FDA-Public Use
  Company Number: PHHY2013NZ001585

PATIENT
  Age: 76 Year
  Sex: Female

DRUGS (8)
  1. CLOZARIL [Suspect]
     Indication: SCHIZOPHRENIA
     Dosage: 50 MG,NOCTE
     Route: 048
     Dates: start: 20100518
  2. NORTRIPTYLINE [Concomitant]
     Dosage: 30 MG, OD
     Route: 048
  3. OMEPRAZOLE [Concomitant]
     Dosage: 20 MG,OD
     Route: 048
  4. SIMVASTATIN [Concomitant]
     Dosage: 40 MG, OD
     Route: 048
  5. GABAPENTIN [Concomitant]
     Dosage: 300 MG, UNK
     Route: 062
  6. METFORMIN [Concomitant]
     Dosage: 500 MG, BID
  7. ASPIRIN (E.C.) [Concomitant]
  8. LAXATIVE [Concomitant]

REACTIONS (6)
  - Gastroenteritis [Recovered/Resolved]
  - Vomiting [Recovered/Resolved]
  - Pyrexia [Recovered/Resolved]
  - Confusional state [Unknown]
  - Atelectasis [Recovered/Resolved]
  - Orthostatic hypotension [Recovered/Resolved]
